FAERS Safety Report 9768550 (Version 3)
Quarter: 2014Q3

REPORT INFORMATION
  Report Type: Report from Study
  Country: US (occurrence: US)
  Receive Date: 20131217
  Receipt Date: 20140731
  Transmission Date: 20150326
  Serious: Yes (Hospitalization, Other)
  Sender: FDA-Public Use
  Company Number: US-BRISTOL-MYERS SQUIBB COMPANY-19891787

PATIENT
  Age: 57 Year
  Sex: Male

DRUGS (6)
  1. GLUCOSAMINE [Concomitant]
     Active Substance: GLUCOSAMINE
     Dosage: 1DF: 2TABS
     Route: 048
  2. LIPITOR [Concomitant]
     Active Substance: ATORVASTATIN CALCIUM
     Dosage: TABS
     Route: 048
  3. BIOTENE MOUTHWASH [Concomitant]
     Indication: DRY MOUTH
     Dosage: LIQUID
     Dates: start: 20131008
  4. MULTIVITAMINS [Concomitant]
     Active Substance: VITAMINS
     Dosage: 1DF: 1TAB
     Route: 048
  5. NIVOLUMAB [Suspect]
     Active Substance: NIVOLUMAB
     Indication: MALIGNANT MELANOMA
     Dosage: 17AUG-03DEC13
     Route: 042
     Dates: start: 20130917
  6. IPILIMUMAB [Suspect]
     Active Substance: IPILIMUMAB
     Indication: MALIGNANT MELANOMA
     Dosage: 17AUG-03DEC13
     Route: 042
     Dates: start: 20130917

REACTIONS (2)
  - Pyrexia [Recovered/Resolved]
  - Dyspnoea [Recovered/Resolved]

NARRATIVE: CASE EVENT DATE: 20131129
